FAERS Safety Report 15948481 (Version 2)
Quarter: 2019Q4

REPORT INFORMATION
  Report Type: Spontaneous
  Country: US (occurrence: US)
  Receive Date: 20190211
  Receipt Date: 20191230
  Transmission Date: 20200122
  Serious: No
  Sender: FDA-Public Use
  Company Number: US-SUNOVION-2019SUN000353

PATIENT
  Age: 31 Year
  Sex: Male

DRUGS (2)
  1. LATUDA [Suspect]
     Active Substance: LURASIDONE HYDROCHLORIDE
     Dosage: UNK
     Route: 048
     Dates: start: 201812, end: 201901
  2. SEROQUEL [Suspect]
     Active Substance: QUETIAPINE FUMARATE

REACTIONS (7)
  - Emotional distress [Unknown]
  - Disturbance in attention [Unknown]
  - Therapy cessation [Unknown]
  - Somnolence [Unknown]
  - Feeling abnormal [Unknown]
  - Irritability [Unknown]
  - Decreased activity [Unknown]

NARRATIVE: CASE EVENT DATE: 201901
